FAERS Safety Report 12402047 (Version 2)
Quarter: 2016Q2

REPORT INFORMATION
  Report Type: Spontaneous
  Country: US (occurrence: US)
  Receive Date: 20160525
  Receipt Date: 20160527
  Transmission Date: 20160815
  Serious: No
  Sender: FDA-Public Use
  Company Number: US-SA-2015SA221034

PATIENT
  Age: 72 Year
  Sex: Male

DRUGS (4)
  1. NOVOLOG [Concomitant]
     Active Substance: INSULIN ASPART
  2. LANTUS SOLOSTAR [Suspect]
     Active Substance: INSULIN GLARGINE
     Indication: TYPE 2 DIABETES MELLITUS
     Dosage: DOSE:25 UNIT(S)
     Route: 065
     Dates: start: 2014
  3. VICTOZA [Concomitant]
     Active Substance: LIRAGLUTIDE
  4. SOLOSTAR [Concomitant]
     Active Substance: DEVICE
     Indication: TYPE 2 DIABETES MELLITUS
     Dates: start: 2014

REACTIONS (4)
  - Herpes zoster [Unknown]
  - Wrong technique in product usage process [Unknown]
  - Pain of skin [Unknown]
  - Pruritus [Unknown]

NARRATIVE: CASE EVENT DATE: 2014
